FAERS Safety Report 7923983-1 (Version None)
Quarter: 2011Q4

REPORT INFORMATION
  Report Type: 
  Country: None (occurrence: None)
  Receive Date: 20111117
  Receipt Date: 20110210
  Transmission Date: 20120403
  Serious: No
  Sender: FDA-Public Use
  Company Number: US-AMGEN-KDL443444

PATIENT
  Age: 54 Year
  Sex: Female
  Weight: 72.562 kg

DRUGS (17)
  1. CYMBALTA [Concomitant]
     Dosage: 30 MG, BID
     Dates: start: 20090422
  2. METHOTREXATE [Concomitant]
     Dosage: 2.5 MG, UNK
     Dates: start: 20090803
  3. LEVOXYL [Concomitant]
     Dosage: 125 MG, UNK
     Dates: start: 20090422
  4. CLONAZEPAM [Concomitant]
     Dosage: 2 MG, UNK
     Dates: start: 20090422
  5. SULFASALAZINE [Concomitant]
     Dosage: 500 MG, UNK
     Dates: start: 20090422
  6. ACTONEL [Concomitant]
     Dosage: 35 MG, UNK
     Dates: start: 20090422, end: 20101123
  7. OMEPRAZOLE [Concomitant]
     Dosage: 20 MG, BID
     Dates: start: 20090422
  8. POLYETHYLENE GLYCOL [Concomitant]
     Dosage: UNK
     Dates: start: 20090422
  9. CELEBREX [Concomitant]
     Dosage: 200 MG, BID
     Dates: start: 20090422
  10. FOLIC ACID [Concomitant]
     Dosage: UNK UNK, BID
     Dates: start: 20090422
  11. ULTRAM [Concomitant]
     Dosage: UNK
     Dates: start: 20090803, end: 20101123
  12. ENBREL [Suspect]
     Indication: ANKYLOSING SPONDYLITIS
     Dosage: 50 MG, QWK
     Route: 058
     Dates: start: 20100220, end: 20100501
  13. PREDNISONE TAB [Concomitant]
     Dosage: UNK UNK, QD
     Dates: start: 20090422, end: 20100519
  14. WARFARIN SODIUM [Concomitant]
     Dosage: 4 MG, UNK
     Dates: start: 20090422
  15. GEODON [Concomitant]
     Dosage: 20 MG, UNK
     Dates: start: 20090422, end: 20101123
  16. AMBIEN [Concomitant]
     Dosage: 12.5 MG, PRN
     Dates: start: 20090422
  17. LEUCOVORIN CALCIUM [Concomitant]
     Dosage: 5 MG, UNK
     Dates: start: 20090803

REACTIONS (2)
  - PAIN IN EXTREMITY [None]
  - SINUSITIS [None]
